FAERS Safety Report 5499547-9 (Version None)
Quarter: 2007Q4

REPORT INFORMATION
  Report Type: 
  Country: None (occurrence: None)
  Receive Date: 20071026
  Receipt Date: 20071012
  Transmission Date: 20080405
  Serious: Yes (Other)
  Sender: FDA-Public Use
  Company Number: US-SHR-US-2007-038862

PATIENT
  Age: 67 Year
  Sex: Male
  Weight: 103 kg

DRUGS (5)
  1. FINACEA [Suspect]
     Indication: ROSACEA
     Dates: start: 20070920, end: 20071010
  2. SUCRALFATE [Concomitant]
     Dosage: 1 MG, 4X/DAY
  3. METOCLOPRAMIDE [Concomitant]
     Dosage: 5 MG, 2X/DAY
  4. PROTONIX [Concomitant]
     Dosage: 5 MG, 2X/DAY
  5. TESTOSTERONE CIPIONATE [Concomitant]
     Dosage: UNK, 1X/2 WEEKS
     Route: 030

REACTIONS (2)
  - ACCIDENTAL EXPOSURE [None]
  - RETINAL VEIN OCCLUSION [None]
